FAERS Safety Report 21385492 (Version 5)
Quarter: 2022Q4

REPORT INFORMATION
  Report Type: Report from Study
  Country: GB (occurrence: None)
  Receive Date: 20220928
  Receipt Date: 20221219
  Transmission Date: 20230112
  Serious: Yes (Hospitalization)
  Sender: FDA-Public Use
  Company Number: GB-ROCHE-2981651

PATIENT
  Age: 69 Year
  Sex: Male

DRUGS (10)
  1. TIRAGOLUMAB [Suspect]
     Active Substance: TIRAGOLUMAB
     Indication: Oesophageal cancer metastatic
     Dosage: DATE OF MOST RECENT DOSE 08-DEC-2021,?END DATE OF MOST RECENT DOSE OF STUDY DRUG PRIOR TO AE: 08/DEC
     Route: 042
     Dates: start: 20211208
  2. ATEZOLIZUMAB [Suspect]
     Active Substance: ATEZOLIZUMAB
     Indication: Oesophageal cancer metastatic
     Dosage: DATE OF MOST RECENT DOSE 08-DEC-2021?END DATE OF MOST RECENT DOSE OF STUDY DRUG PRIOR TO AE: 08/DEC/
     Route: 041
     Dates: start: 20211208
  3. FLUOROURACIL [Suspect]
     Active Substance: FLUOROURACIL
     Indication: Oesophageal cancer metastatic
     Dosage: DATE OF MOST RECENT DOSE 08-DEC-2021 (7750 MG)?END DATE OF MOST RECENT DOSE OF STUDY DRUG PRIOR TO A
     Route: 042
     Dates: start: 20211208
  4. CISPLATIN [Suspect]
     Active Substance: CISPLATIN
     Indication: Oesophageal cancer metastatic
     Dosage: DATE OF MOST RECENT DOSE 08-DEC-2021 (155 MG)?END DATE OF MOST RECENT DOSE OF STUDY DRUG PRIOR TO AE
     Route: 042
     Dates: start: 20211208
  5. FOLIC ACID [Concomitant]
     Active Substance: FOLIC ACID
     Route: 048
     Dates: start: 20210827
  6. OMEPRAZOLE [Concomitant]
     Active Substance: OMEPRAZOLE
     Indication: Regurgitation
     Route: 048
     Dates: start: 20210923
  7. CYANOCOBALAMIN [Concomitant]
     Active Substance: CYANOCOBALAMIN
     Indication: Vitamin B12 deficiency
     Route: 048
     Dates: start: 20210827
  8. POTASSIUM CHLORIDE [Concomitant]
     Active Substance: POTASSIUM CHLORIDE
     Route: 042
     Dates: start: 20211208, end: 20220330
  9. MAGNESIUM SULFATE [Concomitant]
     Active Substance: MAGNESIUM SULFATE
     Route: 042
     Dates: start: 20211208, end: 20220330
  10. DALTEPARIN [Concomitant]
     Active Substance: DALTEPARIN
     Indication: Phlebitis
     Route: 058
     Dates: start: 20220216

REACTIONS (2)
  - Vomiting [Recovered/Resolved]
  - Upper gastrointestinal haemorrhage [Recovered/Resolved]

NARRATIVE: CASE EVENT DATE: 20211210
